FAERS Safety Report 7802055-0 (Version None)
Quarter: 2011Q4

REPORT INFORMATION
  Report Type: 
  Country: None (occurrence: None)
  Receive Date: 20111007
  Receipt Date: 20111003
  Transmission Date: 20120403
  Serious: Yes (Hospitalization, Other)
  Sender: FDA-Public Use
  Company Number: PHEH2011US01792

PATIENT
  Sex: Female
  Weight: 64.399 kg

DRUGS (9)
  1. EXJADE [Suspect]
     Indication: SICKLE CELL ANAEMIA
     Dosage: 1000 MG, BID
     Route: 048
     Dates: start: 20110422
  2. KLOR-CON [Concomitant]
     Dosage: 20 MEQ, DAILY
     Route: 048
  3. KEPPRA [Concomitant]
     Dosage: 500 MG, BID
     Route: 048
  4. EXJADE [Suspect]
     Indication: IRON OVERLOAD
     Dosage: 500 MG, QID
     Route: 048
  5. FOLIC ACID [Concomitant]
     Route: 048
  6. RED BLOOD CELLS, CONCENTRATED [Concomitant]
     Dosage: 4 U, UNK
  7. FLUOXETINE [Concomitant]
     Dosage: 20 MG, DAILY
     Route: 048
  8. LORTAB [Concomitant]
     Dosage: 10 MG, DAILY
     Route: 048
  9. FLEXERIL [Concomitant]
     Dosage: 10 MG, DAILY
     Route: 048

REACTIONS (8)
  - EFFUSION [None]
  - SICKLE CELL ANAEMIA WITH CRISIS [None]
  - OEDEMA PERIPHERAL [None]
  - BACK PAIN [None]
  - BURSITIS [None]
  - SPLENIC CYST [None]
  - HAEMANGIOMA [None]
  - ARTHRALGIA [None]
